FAERS Safety Report 5455179-X (Version None)
Quarter: 2007Q3

REPORT INFORMATION
  Report Type: 
  Country: None (occurrence: None)
  Receive Date: 20070914
  Receipt Date: 20070905
  Transmission Date: 20080115
  Serious: Yes (Other)
  Sender: FDA-Public Use
  Company Number: 2007SP010828

PATIENT
  Age: 54 Year
  Sex: Male
  Weight: 86 kg

DRUGS (5)
  1. VIRAFERONPEG [Suspect]
     Indication: HEPATITIS C
     Dosage: 135 MCG;QW;SC
     Route: 058
     Dates: start: 20060919, end: 20070814
  2. REBETOL [Suspect]
     Indication: HEPATITIS C
     Dosage: 1200 MG;QD;PO
     Route: 048
     Dates: start: 20060919, end: 20070814
  3. AMARYL [Concomitant]
  4. GLUCOPHAGE [Concomitant]
  5. THERALENE [Concomitant]

REACTIONS (3)
  - INJECTION SITE REACTION [None]
  - PANNICULITIS [None]
  - SKIN NECROSIS [None]
